FAERS Safety Report 8969873 (Version 1)
Quarter: 2012Q4

REPORT INFORMATION
  Report Type: 
  Country: US (occurrence: US)
  Receive Date: 20121218
  Receipt Date: 20121218
  Transmission Date: 20130627
  Serious: No
  Sender: FDA-Public Use
  Company Number: US-BRISTOL-MYERS SQUIBB COMPANY-16545972

PATIENT
  Age: 85 Year

DRUGS (5)
  1. ABILIFY TABS [Suspect]
     Dates: start: 20120402
  2. CELEXA [Concomitant]
  3. METOPROLOL [Concomitant]
  4. XANAX [Concomitant]
  5. ASPIRIN [Concomitant]

REACTIONS (1)
  - Blood alkaline phosphatase increased [Unknown]
